FAERS Safety Report 7150275-3 (Version None)
Quarter: 2010Q4

REPORT INFORMATION
  Report Type: 
  Country: None (occurrence: None)
  Receive Date: 20101123
  Receipt Date: 20101005
  Transmission Date: 20110411
  Serious: No
  Sender: FDA-Public Use
  Company Number: 018384

PATIENT
  Sex: Female
  Weight: 68 kg

DRUGS (5)
  1. CIMZIA [Suspect]
     Indication: CROHN'S DISEASE
     Dosage: (400 MG 1X/MONTH SUBCUTANEOUS)
     Route: 058
     Dates: start: 20100720
  2. ASACOL [Concomitant]
  3. FOLIC ACID [Concomitant]
  4. PROBIOTICA [Concomitant]
  5. COLESTIPOL HYDROCHLORIDE [Concomitant]

REACTIONS (9)
  - DEPRESSION [None]
  - DIARRHOEA [None]
  - DRUG ERUPTION [None]
  - FEELING ABNORMAL [None]
  - INFLUENZA LIKE ILLNESS [None]
  - INJECTION SITE HAEMATOMA [None]
  - NEEDLE ISSUE [None]
  - PARAESTHESIA [None]
  - PRODUCT QUALITY ISSUE [None]
